FAERS Safety Report 24972324 (Version 3)
Quarter: 2025Q2

REPORT INFORMATION
  Report Type: Report from Study
  Country: DE (occurrence: DE)
  Receive Date: 20250214
  Receipt Date: 20250604
  Transmission Date: 20250717
  Serious: Yes (Hospitalization)
  Sender: ABBVIE
  Company Number: DE-ABBVIE-6111723

PATIENT
  Sex: Male

DRUGS (2)
  1. CARBIDOPA\LEVODOPA [Suspect]
     Active Substance: CARBIDOPA\LEVODOPA
     Indication: Parkinson^s disease
     Route: 050
     Dates: start: 20190708
  2. CARBIDOPA\LEVODOPA [Suspect]
     Active Substance: CARBIDOPA\LEVODOPA

REACTIONS (5)
  - Fungal infection [Recovering/Resolving]
  - Stoma site inflammation [Recovering/Resolving]
  - Injection site inflammation [Unknown]
  - Device dislocation [Unknown]
  - Skin irritation [Unknown]
